FAERS Safety Report 21199994 (Version 1)
Quarter: 2022Q3

REPORT INFORMATION
  Report Type: Spontaneous
  Country: US (occurrence: None)
  Receive Date: 20220810
  Receipt Date: 20220810
  Transmission Date: 20221026
  Serious: Yes (Hospitalization)
  Sender: FDA-Public Use
  Company Number: None

PATIENT
  Age: 38 Year
  Sex: Female
  Weight: 65.6 kg

DRUGS (6)
  1. INFED [Suspect]
     Active Substance: IRON DEXTRAN
     Indication: Iron deficiency anaemia
     Dosage: FREQUENCY : ONCE;?
     Route: 042
     Dates: start: 20220613, end: 20220725
  2. FOLIC ACID [Concomitant]
     Active Substance: FOLIC ACID
  3. VITAMIN D3 [Concomitant]
     Active Substance: CHOLECALCIFEROL
  4. HYDROXYZINE [Concomitant]
     Active Substance: HYDROXYZINE HYDROCHLORIDE
  5. VYVANSE [Concomitant]
  6. LIOTHYRONINE [Concomitant]
     Active Substance: LIOTHYRONINE

REACTIONS (10)
  - Dyspnoea [None]
  - Throat tightness [None]
  - Abdominal pain [None]
  - Flushing [None]
  - Chest pain [None]
  - Nausea [None]
  - Hyperhidrosis [None]
  - Infusion related reaction [None]
  - Heart rate decreased [None]
  - Blood pressure decreased [None]

NARRATIVE: CASE EVENT DATE: 20220725
